FAERS Safety Report 9657601 (Version 2)
Quarter: 2013Q4

REPORT INFORMATION
  Report Type: Spontaneous
  Country: GR (occurrence: GR)
  Receive Date: 20131030
  Receipt Date: 20131118
  Transmission Date: 20140711
  Serious: Yes (Death)
  Sender: FDA-Public Use
  Company Number: GR-CELGENEUS-066-21880-13103589

PATIENT
  Sex: 0

DRUGS (7)
  1. REVLIMID [Suspect]
     Indication: PLASMA CELL MYELOMA
     Route: 048
  2. CYCLOPHOSPHAMIDE [Concomitant]
     Indication: PLASMA CELL MYELOMA
     Route: 065
  3. ETOPOSIDE [Concomitant]
     Indication: PLASMA CELL MYELOMA
     Route: 065
  4. DEXAMETHASONE [Concomitant]
     Indication: PLASMA CELL MYELOMA
     Route: 065
  5. BORTEZOMIB [Concomitant]
     Indication: PLASMA CELL MYELOMA
     Route: 065
  6. MELPHALAN [Concomitant]
     Indication: PLASMA CELL MYELOMA
     Route: 065
  7. THALIDOMIDE [Concomitant]
     Indication: PLASMA CELL MYELOMA
     Route: 065

REACTIONS (1)
  - Zygomycosis [Fatal]
